FAERS Safety Report 8430221-2 (Version None)
Quarter: 2012Q2

REPORT INFORMATION
  Report Type: 
  Country: None (occurrence: None)
  Receive Date: 20120612
  Receipt Date: 20120601
  Transmission Date: 20120825
  Serious: Yes (Hospitalization)
  Sender: FDA-Public Use
  Company Number: US-BRISTOL-MYERS SQUIBB COMPANY-16656134

PATIENT
  Age: 70 Year
  Sex: Female
  Weight: 44 kg

DRUGS (1)
  1. YERVOY [Suspect]
     Indication: INTRAOCULAR MELANOMA
     Dosage: 3RD INFUSION ON 01-MAY-2012; TOTAL NO OF INFUSIONS: 3.
     Dates: start: 20120301

REACTIONS (7)
  - MALAISE [None]
  - MENTAL STATUS CHANGES [None]
  - BLISTER [None]
  - DECREASED APPETITE [None]
  - DEHYDRATION [None]
  - WEIGHT DECREASED [None]
  - DIARRHOEA [None]
